FAERS Safety Report 23362184 (Version 4)
Quarter: 2024Q1

REPORT INFORMATION
  Report Type: Report from Study
  Country: US (occurrence: US)
  Receive Date: 20240103
  Receipt Date: 20240221
  Transmission Date: 20240410
  Serious: Yes (Other)
  Sender: FDA-Public Use
  Company Number: US-UCBSA-2024000165

PATIENT
  Sex: Female

DRUGS (5)
  1. FINTEPLA [Suspect]
     Active Substance: FENFLURAMINE
     Indication: Lennox-Gastaut syndrome
     Dosage: 3 MILLILITER, 2X/DAY (BID)
     Dates: start: 20231215
  2. KEPPRA [Concomitant]
     Active Substance: LEVETIRACETAM
     Indication: Product used for unknown indication
     Dosage: UNK
  3. RUFINAMIDE [Concomitant]
     Active Substance: RUFINAMIDE
     Indication: Product used for unknown indication
     Dosage: UNK
  4. LACOSAMIDE [Concomitant]
     Active Substance: LACOSAMIDE
     Indication: Product used for unknown indication
     Dosage: UNK
  5. CLOBAZAM [Concomitant]
     Active Substance: CLOBAZAM
     Indication: Product used for unknown indication

REACTIONS (3)
  - Gastrointestinal tube insertion [Not Recovered/Not Resolved]
  - Constipation [Recovering/Resolving]
  - Somnolence [Recovering/Resolving]

NARRATIVE: CASE EVENT DATE: 20230101
